FAERS Safety Report 6717912-6 (Version None)
Quarter: 2010Q2

REPORT INFORMATION
  Report Type: 
  Country: None (occurrence: None)
  Receive Date: 20100510
  Receipt Date: 20100423
  Transmission Date: 20101027
  Serious: Yes (Death, Life-Threatening, Other)
  Sender: FDA-Public Use
  Company Number: PHEH2006US05810

PATIENT
  Sex: Male

DRUGS (40)
  1. AREDIA [Suspect]
  2. ZOMETA [Suspect]
  3. VELCADE [Concomitant]
  4. KYTRIL [Concomitant]
  5. DECADRON [Concomitant]
  6. LEVAQUIN [Concomitant]
  7. VIDAZA [Concomitant]
  8. DILTIAZEM HCL [Concomitant]
  9. LIPITOR [Concomitant]
  10. PROSCAR [Concomitant]
  11. ALPHAGAN [Concomitant]
  12. LOVENOX [Concomitant]
  13. ZOCOR [Concomitant]
  14. ACIPHEX [Concomitant]
  15. ASPIRIN [Concomitant]
  16. EFFEXOR [Concomitant]
  17. MULTIVITAMIN ^LAPPE^ [Concomitant]
  18. RAZADYNE [Concomitant]
  19. NAMENDA [Concomitant]
  20. COUMADIN [Concomitant]
  21. PERCOCET [Concomitant]
  22. VINCRISTINE [Concomitant]
  23. ADRIAMYCIN PFS [Concomitant]
  24. MELPHALAN HYDROCHLORIDE [Concomitant]
  25. PENICILLIN VK [Concomitant]
  26. CHLORHEXIDINE GLUCONATE [Concomitant]
  27. CELEXA [Concomitant]
  28. FISH OIL [Concomitant]
  29. AGGRENOX [Concomitant]
  30. DONEPEZIL HCL [Concomitant]
  31. DURAGESIC-100 [Concomitant]
  32. MORPHINE SULFATE [Concomitant]
  33. CEFTRIAXONE [Concomitant]
  34. FLUCONAZOLE [Concomitant]
  35. VITAMIN K TAB [Concomitant]
  36. AZITHROMYCIN [Concomitant]
  37. BRIMONIDINE [Concomitant]
  38. ARICEPT [Concomitant]
  39. NAPROXEN [Concomitant]
  40. LISINOPRIL [Concomitant]

REACTIONS (33)
  - ANXIETY [None]
  - APNOEA [None]
  - BASAL CELL CARCINOMA [None]
  - BONE DISORDER [None]
  - BONE MARROW TRANSPLANT [None]
  - BRAIN MASS [None]
  - BRUXISM [None]
  - CARDIAC ARREST [None]
  - CATARACT [None]
  - CEREBRAL INFARCTION [None]
  - CEREBROVASCULAR ACCIDENT [None]
  - CONSTIPATION [None]
  - DEATH [None]
  - DENTAL OPERATION [None]
  - ELECTROCARDIOGRAM ABNORMAL [None]
  - ENDARTERECTOMY [None]
  - FATIGUE [None]
  - HYPERCALCAEMIA [None]
  - HYPOPNOEA [None]
  - MYALGIA [None]
  - NAUSEA [None]
  - ORAL INFECTION [None]
  - OSTEONECROSIS OF JAW [None]
  - PAIN [None]
  - PAIN IN JAW [None]
  - PNEUMONIA [None]
  - PULPITIS DENTAL [None]
  - RESUSCITATION [None]
  - SKIN NEOPLASM EXCISION [None]
  - SNORING [None]
  - SWELLING [None]
  - TOOTH EXTRACTION [None]
  - VISUAL FIELD DEFECT [None]
